FAERS Safety Report 16948956 (Version 1)
Quarter: 2019Q4

REPORT INFORMATION
  Report Type: Report from Study
  Country: CO (occurrence: CO)
  Receive Date: 20191023
  Receipt Date: 20191023
  Transmission Date: 20200122
  Serious: Yes (Life-Threatening, Hospitalization, Other)
  Sender: FDA-Public Use
  Company Number: PHHY2019CO017190

PATIENT
  Sex: Male
  Weight: 43 kg

DRUGS (5)
  1. MYCOPHENOLATE MOFETIL. [Suspect]
     Active Substance: MYCOPHENOLATE MOFETIL
     Indication: PRODUCT USED FOR UNKNOWN INDICATION
     Dosage: UNK, Q12H
     Route: 048
  2. PREDNISOLONE. [Suspect]
     Active Substance: PREDNISOLONE
     Indication: COAGULATION FACTOR
     Dosage: 5 MG, Q12H
     Route: 048
  3. REVOLADE [Suspect]
     Active Substance: ELTROMBOPAG
     Indication: IMMUNE THROMBOCYTOPENIC PURPURA
     Dosage: 50 MG, QD
     Route: 048
     Dates: start: 201710
  4. REVOLADE [Suspect]
     Active Substance: ELTROMBOPAG
     Dosage: 75 MG, QD
     Route: 048
     Dates: start: 20171006
  5. CALCIUM [Concomitant]
     Active Substance: CALCIUM
     Indication: DECREASED IMMUNE RESPONSIVENESS
     Dosage: UNK, QD
     Route: 048

REACTIONS (9)
  - Syncope [Recovered/Resolved]
  - Platelet count decreased [Unknown]
  - Platelet count increased [Recovering/Resolving]
  - Anaemia [Unknown]
  - Product physical issue [Unknown]
  - Cardiac disorder [Recovered/Resolved]
  - Heart rate increased [Recovered/Resolved]
  - Drug intolerance [Recovered/Resolved]
  - Product outer packaging issue [Unknown]
